FAERS Safety Report 7736456-6 (Version None)
Quarter: 2011Q3

REPORT INFORMATION
  Report Type: 
  Country: None (occurrence: None)
  Receive Date: 20110908
  Receipt Date: 20110901
  Transmission Date: 20111222
  Serious: Yes (Death, Other)
  Sender: FDA-Public Use
  Company Number: MX-BRISTOL-MYERS SQUIBB COMPANY-16032740

PATIENT
  Age: 71 Year
  Sex: Female

DRUGS (1)
  1. IRBESARTAN AND HYDROCHLOROTHIAZIDE [Suspect]
     Indication: HYPERTENSION
     Dosage: 1DF=1TABLET
     Route: 048
     Dates: start: 20040101, end: 20110404

REACTIONS (2)
  - HEPATIC NEOPLASM [None]
  - CHOLECYSTITIS [None]
